FAERS Safety Report 6811460-0 (Version None)
Quarter: 2010Q2

REPORT INFORMATION
  Report Type: 
  Country: None (occurrence: None)
  Receive Date: 20100629
  Receipt Date: 20100629
  Transmission Date: 20101027
  Serious: Yes (Hospitalization)
  Sender: FDA-Public Use
  Company Number: None

PATIENT
  Age: 28 Year
  Sex: Male
  Weight: 71.6683 kg

DRUGS (1)
  1. D-AMPHETAMINE SALT COMBO 15MG BARR [Suspect]
     Indication: ATTENTION DEFICIT/HYPERACTIVITY DISORDER
     Dosage: 15MG TWICE DAILY PO
     Route: 048
     Dates: start: 20100609, end: 20100626

REACTIONS (10)
  - ANXIETY [None]
  - CONFUSIONAL STATE [None]
  - DYSPNOEA [None]
  - FEELING ABNORMAL [None]
  - HYPERTENSION [None]
  - HYPOAESTHESIA [None]
  - PANIC ATTACK [None]
  - PRODUCT MEASURED POTENCY ISSUE [None]
  - PRODUCT SUBSTITUTION ISSUE [None]
  - SPEECH DISORDER [None]
